FAERS Safety Report 21000362 (Version 5)
Quarter: 2022Q3

REPORT INFORMATION
  Report Type: Report from Study
  Country: BE (occurrence: BE)
  Receive Date: 20220623
  Receipt Date: 20220803
  Transmission Date: 20221027
  Serious: Yes (Death, Other)
  Sender: FDA-Public Use
  Company Number: BE-DSJP-DSU-2022-122022

PATIENT
  Age: 56 Year
  Sex: Female
  Weight: 55.5 kg

DRUGS (6)
  1. ENHERTU [Suspect]
     Active Substance: FAM-TRASTUZUMAB DERUXTECAN-NXKI
     Indication: HER2 positive breast cancer
     Dosage: 375 MG, ONCE EVERY 3 WK (5.4 MG/KG)
     Route: 042
     Dates: start: 20220210, end: 20220525
  2. ENHERTU [Suspect]
     Active Substance: FAM-TRASTUZUMAB DERUXTECAN-NXKI
     Indication: Breast cancer metastatic
  3. PANTOPRAZOLE [Concomitant]
     Active Substance: PANTOPRAZOLE
     Indication: Dyspepsia
     Dosage: 40 MG, QD
     Route: 048
     Dates: start: 20220121, end: 20220617
  4. MEDROL A [Concomitant]
     Indication: Decreased appetite
     Dosage: 8 MG, QD
     Route: 048
     Dates: start: 20220525, end: 20220617
  5. MEDROL A [Concomitant]
     Indication: Metastases to central nervous system
  6. KEPPRA [Concomitant]
     Active Substance: LEVETIRACETAM
     Indication: Epilepsy
     Dosage: 500 MG, QD
     Route: 048
     Dates: start: 20220121, end: 20220617

REACTIONS (2)
  - Pneumonia [Fatal]
  - Mucosal inflammation [Not Recovered/Not Resolved]

NARRATIVE: CASE EVENT DATE: 20220601
